FAERS Safety Report 19106827 (Version 4)
Quarter: 2021Q2

REPORT INFORMATION
  Report Type: Spontaneous
  Country: CN (occurrence: CN)
  Receive Date: 20210408
  Receipt Date: 20210611
  Transmission Date: 20210717
  Serious: Yes (Life-Threatening)
  Sender: FDA-Public Use
  Company Number: NVSC2021CN078889

PATIENT
  Age: 58 Year
  Sex: Female

DRUGS (1)
  1. ACLASTA [Suspect]
     Active Substance: ZOLEDRONIC ACID
     Indication: PRODUCT USED FOR UNKNOWN INDICATION
     Dosage: UNK (STARTED ON 29 MAR)
     Route: 065

REACTIONS (5)
  - Mental status changes [Unknown]
  - Multimorbidity [Unknown]
  - Pyrexia [Recovered/Resolved]
  - Feeling abnormal [Unknown]
  - Hepatic function abnormal [Unknown]
